FAERS Safety Report 22267171 (Version 2)
Quarter: 2023Q2

REPORT INFORMATION
  Report Type: Report from Study
  Country: DE (occurrence: DE)
  Receive Date: 20230428
  Receipt Date: 20230522
  Transmission Date: 20230721
  Serious: Yes (Hospitalization)
  Sender: FDA-Public Use
  Company Number: DE-JNJFOC-20230448202

PATIENT
  Age: 40 Year
  Sex: Female

DRUGS (17)
  1. STELARA [Suspect]
     Active Substance: USTEKINUMAB
     Indication: Crohn^s disease
     Dosage: 250 ML TOTAL
     Route: 042
     Dates: start: 20220215, end: 20220215
  2. STELARA [Suspect]
     Active Substance: USTEKINUMAB
     Route: 058
     Dates: start: 20220405, end: 20221122
  3. RISANKIZUMAB [Suspect]
     Active Substance: RISANKIZUMAB
     Indication: Crohn^s disease
     Dosage: DRUG NOT STARTED
     Route: 065
  4. CANDESARTAN CILEXETIL [Concomitant]
     Active Substance: CANDESARTAN CILEXETIL
     Indication: Hypertension
     Route: 065
     Dates: start: 201801
  5. HYDROCHLOROTHIAZIDE [Concomitant]
     Active Substance: HYDROCHLOROTHIAZIDE
     Indication: Hypertension
     Route: 065
     Dates: start: 201811
  6. L THYROXIN BETA [Concomitant]
     Indication: Hypothyroidism
     Route: 065
     Dates: start: 2012
  7. COLECALCIFEROL ARISTO [Concomitant]
     Indication: Vitamin D deficiency
     Route: 065
     Dates: start: 20210914
  8. DESOGESTREL [Concomitant]
     Active Substance: DESOGESTREL
     Indication: Contraception
     Route: 065
     Dates: start: 202007
  9. FOSTER [Concomitant]
     Active Substance: BECLOMETHASONE\FORMOTEROL
     Indication: Asthma
     Dosage: 2 SPRAY, 2/DAYS
     Route: 065
     Dates: start: 202102
  10. PANTOPRAZOLE [Concomitant]
     Active Substance: PANTOPRAZOLE
     Indication: Dyspepsia
     Dosage: 40 MG, AS NECESSARY
     Route: 065
     Dates: start: 2018
  11. METAMIZOLE [Concomitant]
     Active Substance: METAMIZOLE
     Indication: Pain
     Dosage: 500 MG, AS NECESSARY
     Route: 065
     Dates: start: 2004
  12. METAMIZOLE [Concomitant]
     Active Substance: METAMIZOLE
     Indication: Arthralgia
  13. METAMIZOLE [Concomitant]
     Active Substance: METAMIZOLE
     Indication: Abdominal pain
  14. FENOTEROL HYDROBROMIDE\IPRATROPIUM BROMIDE [Concomitant]
     Active Substance: FENOTEROL HYDROBROMIDE\IPRATROPIUM BROMIDE
     Indication: Asthma
     Dosage: 1 SPRAY, AS NECESSARY
     Route: 065
     Dates: start: 2012
  15. BISOPROLOL FUMARATE [Concomitant]
     Active Substance: BISOPROLOL FUMARATE
     Indication: Hypertension
     Route: 065
     Dates: start: 202102
  16. COLESEVELAM HYDROCHLORIDE [Concomitant]
     Active Substance: COLESEVELAM HYDROCHLORIDE
     Indication: Bile acid malabsorption
     Route: 065
     Dates: start: 20221107
  17. MENTHA PIPERITA [Concomitant]
     Active Substance: MENTHA PIPERITA
     Indication: Flatulence
     Dosage: 0.2 ML, AS NECESSARY
     Route: 065
     Dates: start: 20230117

REACTIONS (2)
  - Anal fistula [Recovered/Resolved]
  - Cystitis [Unknown]

NARRATIVE: CASE EVENT DATE: 20230117
